FAERS Safety Report 10073623 (Version 3)
Quarter: 2014Q2

REPORT INFORMATION
  Report Type: Spontaneous
  Country: US (occurrence: US)
  Receive Date: 20140411
  Receipt Date: 20140522
  Transmission Date: 20141212
  Serious: Yes (Disabling)
  Sender: FDA-Public Use
  Company Number: PHEH2014US004316

PATIENT
  Age: 56 Year
  Sex: Female

DRUGS (13)
  1. RECLAST [Suspect]
     Indication: OSTEOPOROSIS
     Dosage: 5 MG, ONCE
     Route: 042
     Dates: start: 20140222
  2. VITAMIN D3 [Concomitant]
     Dosage: 5000 IU, UNK
  3. CALCIUM [Concomitant]
     Dosage: 1500 MG
  4. TRAZODONE [Concomitant]
     Dosage: 150 MG, QHS
  5. OXYCONTIN [Concomitant]
     Dosage: UNK UKN, UNK
  6. PAXIL//PAROXETINE HYDROCHLORIDE [Concomitant]
     Dosage: 60 MG, QHS
     Route: 048
  7. LAMICTAL [Concomitant]
     Dosage: 200 MG, QD
  8. SIMVASTATIN [Concomitant]
     Dosage: 40 MG, QD (BEDTIME)
  9. OXYCODONE [Concomitant]
     Dosage: 30 MG, 6 PER DAY
  10. ADDERALL [Concomitant]
     Dosage: 30 MG, 4 TIMES A DAY
  11. LORAZEPAM [Concomitant]
     Dosage: 1 MG, BID PRN
  12. IBU [Concomitant]
     Dosage: 800 MG, TID
  13. NEUROTIN//ACETYLCARNITINE HYDROCHLORIDE [Concomitant]
     Dosage: 300 MG, QD

REACTIONS (16)
  - Complex regional pain syndrome [Unknown]
  - Drug intolerance [Unknown]
  - Gait disturbance [Unknown]
  - Stress [Unknown]
  - Depression [Unknown]
  - Feeling of body temperature change [Unknown]
  - Arthropathy [Recovered/Resolved]
  - Osteoporosis [Unknown]
  - Bone pain [Recovered/Resolved]
  - Pain [Recovering/Resolving]
  - Neck pain [Unknown]
  - Influenza like illness [Unknown]
  - Arthralgia [Recovered/Resolved]
  - Myalgia [Recovered/Resolved]
  - Anxiety [Unknown]
  - Hypertension [Unknown]
